FAERS Safety Report 15245732 (Version 1)
Quarter: 2018Q3

REPORT INFORMATION
  Report Type: Spontaneous
  Country: US (occurrence: US)
  Receive Date: 20180713
  Receipt Date: 20180713
  Transmission Date: 20181010
  Serious: No
  Sender: FDA-Public Use
  Company Number: None

PATIENT
  Age: 18 Year
  Sex: Male
  Weight: 76.5 kg

DRUGS (3)
  1. COUMADIN [Concomitant]
     Active Substance: WARFARIN SODIUM
  2. MULTAQ [Concomitant]
     Active Substance: DRONEDARONE
  3. ACCUTANE [Suspect]
     Active Substance: ISOTRETINOIN
     Dosage: ?          QUANTITY:1 TABLET(S);?
     Route: 060

REACTIONS (1)
  - Libido decreased [None]

NARRATIVE: CASE EVENT DATE: 19910102
